FAERS Safety Report 13594265 (Version 2)
Quarter: 2017Q3

REPORT INFORMATION
  Report Type: Spontaneous
  Country: US (occurrence: US)
  Receive Date: 20170530
  Receipt Date: 20170720
  Transmission Date: 20171127
  Serious: No
  Sender: FDA-Public Use
  Company Number: US-PFIZER INC-2017235664

PATIENT
  Age: 51 Year
  Sex: Female

DRUGS (14)
  1. METOCLOPRAMIDE. [Concomitant]
     Active Substance: METOCLOPRAMIDE
     Dosage: 10 MG, UNK
  2. XALKORI [Suspect]
     Active Substance: CRIZOTINIB
     Dosage: 250 MG, UNK
  3. ALECENSA [Suspect]
     Active Substance: ALECTINIB HYDROCHLORIDE
     Dosage: 600 UNK, TWICE A DAY
     Route: 048
     Dates: start: 20160409, end: 20170705
  4. ONDANSETRON HCL [Concomitant]
     Active Substance: ONDANSETRON HYDROCHLORIDE
     Dosage: 8 MG, UNK
  5. PERCOCET [Concomitant]
     Active Substance: ACETAMINOPHEN\OXYCODONE HYDROCHLORIDE
     Dosage: UNK, [OXYCODONE HYDROCHLORIDE 2.5MG, ACETAMINOPHEN 325MG]
  6. LUNESTA [Concomitant]
     Active Substance: ESZOPICLONE
     Dosage: 2 MG, UNK
  7. MORPHINE [Concomitant]
     Active Substance: MORPHINE
     Dosage: 30 MG, UNK
  8. PROBIOTIC [Concomitant]
     Active Substance: PROBIOTICS NOS
     Dosage: UNK
  9. PRILOSEC [Concomitant]
     Active Substance: OMEPRAZOLE MAGNESIUM
     Dosage: 20 MG, UNK
  10. SENNA [Concomitant]
     Active Substance: SENNA LEAF\SENNOSIDES\SENNOSIDES A AND B
     Dosage: 8.6 MG, UNK
  11. XALKORI [Suspect]
     Active Substance: CRIZOTINIB
     Indication: LUNG NEOPLASM MALIGNANT
     Dosage: UNK
  12. BRIGATINIB [Suspect]
     Active Substance: BRIGATINIB
     Dosage: 180 MG, DAILY
  13. METHYLPHENIDATE. [Concomitant]
     Active Substance: METHYLPHENIDATE
     Dosage: 5 MG/ML, UNK (25MG/5 ML)
     Route: 048
  14. BRISDELLE [Concomitant]
     Active Substance: PAROXETINE MESYLATE
     Dosage: 7.5 MG, UNK

REACTIONS (1)
  - Neoplasm progression [Unknown]
